FAERS Safety Report 5975627-6 (Version None)
Quarter: 2008Q4

REPORT INFORMATION
  Report Type: 
  Country: None (occurrence: None)
  Receive Date: 20081202
  Receipt Date: 20081128
  Transmission Date: 20090506
  Serious: Yes (Other)
  Sender: FDA-Public Use
  Company Number: CA-WYE-G02373308

PATIENT
  Age: 60 Year
  Sex: Female
  Weight: 56.8 kg

DRUGS (24)
  1. TIGECYCLINE [Suspect]
     Indication: OSTEOMYELITIS
     Route: 042
     Dates: start: 20081008, end: 20081008
  2. GRAVOL TAB [Concomitant]
     Indication: NAUSEA
     Dosage: 50 MG EVERY
     Route: 042
  3. ASCORBIC ACID [Concomitant]
     Route: 048
  4. LEVOTHYROXINE SODIUM [Concomitant]
     Route: 048
  5. ATORVASTATIN CALCIUM [Concomitant]
  6. CALCITONIN-SALMON [Concomitant]
     Dosage: UNKNOWN
     Route: 045
  7. BUSCOPAN [Concomitant]
     Route: 048
  8. HYDROMORPHONE HCL [Concomitant]
     Dosage: 4 MG EVERY
     Route: 048
  9. HYDROMORPHONE HCL [Concomitant]
  10. METOPROLOL [Concomitant]
     Route: 048
  11. OMEPRAZOLE [Concomitant]
     Route: 048
  12. NITRO-DUR [Concomitant]
     Dosage: .2 MG EVERY
     Route: 062
  13. ZOPICLONE [Concomitant]
     Route: 048
  14. VITAMINS [Concomitant]
     Route: 048
  15. GABAPENTIN [Concomitant]
     Route: 048
  16. VITAMINS [Concomitant]
     Dosage: 200 UNIT EVERY 1 DAY
     Route: 048
  17. HYDROCHLOROTHIAZIDE [Concomitant]
     Route: 048
  18. CALCIUM CITRATE [Concomitant]
     Route: 048
  19. DOCUSATE [Concomitant]
     Route: 048
  20. SENNA [Concomitant]
     Route: 048
  21. DICLECTIN [Concomitant]
     Route: 048
  22. FENTANYL-100 [Concomitant]
     Dosage: 600 UG EVERY
  23. HALDOL [Concomitant]
     Route: 048
  24. HALDOL [Concomitant]
     Dosage: 50 MG EVERY
     Route: 042

REACTIONS (11)
  - ABDOMINAL PAIN [None]
  - ACQUIRED PORPHYRIA [None]
  - ASTHENIA [None]
  - BACK PAIN [None]
  - BLOOD PRESSURE INCREASED [None]
  - CHEST PAIN [None]
  - CONDITION AGGRAVATED [None]
  - NAUSEA [None]
  - PALLOR [None]
  - PALPITATIONS [None]
  - TREMOR [None]
